FAERS Safety Report 4866447-4 (Version None)
Quarter: 2005Q4

REPORT INFORMATION
  Report Type: 
  Country: None (occurrence: None)
  Receive Date: 20051227
  Receipt Date: 20051215
  Transmission Date: 20060501
  Serious: Yes (Disabling)
  Sender: FDA-Public Use
  Company Number: 2005SE07298

PATIENT
  Age: 69 Year
  Sex: Female

DRUGS (6)
  1. SEROQUEL [Suspect]
     Route: 048
  2. ANAFRANIL [Concomitant]
  3. LAMICTAL [Concomitant]
     Dosage: 150 MG + 200 MG DAILY DOSAGE
  4. IMOVANE [Concomitant]
  5. CISORDINOL [Concomitant]
  6. CISORDINOL [Concomitant]

REACTIONS (3)
  - APATHY [None]
  - CATATONIA [None]
  - INCONTINENCE [None]
